FAERS Safety Report 20656732 (Version 1)
Quarter: 2022Q1

REPORT INFORMATION
  Report Type: Spontaneous
  Country: BR (occurrence: BR)
  Receive Date: 20220331
  Receipt Date: 20220331
  Transmission Date: 20220424
  Serious: Yes (Hospitalization)
  Sender: FDA-Public Use
  Company Number: BR-LUPIN PHARMACEUTICALS INC.-2022-04395

PATIENT
  Age: 14 Year
  Sex: Female

DRUGS (8)
  1. LINEZOLID [Suspect]
     Active Substance: LINEZOLID
     Indication: Acute sinusitis
     Dosage: UNK
     Route: 065
  2. LINEZOLID [Suspect]
     Active Substance: LINEZOLID
     Indication: Fusarium infection
  3. MEROPENEM [Suspect]
     Active Substance: MEROPENEM
     Indication: Acute sinusitis
     Dosage: UNK
     Route: 065
  4. MEROPENEM [Suspect]
     Active Substance: MEROPENEM
     Indication: Fusarium infection
  5. AMPHOTERICIN B [Suspect]
     Active Substance: AMPHOTERICIN B
     Indication: Acute sinusitis
     Dosage: UNK
     Route: 065
  6. AMPHOTERICIN B [Suspect]
     Active Substance: AMPHOTERICIN B
     Indication: Fusarium infection
  7. MICAFUNGIN [Suspect]
     Active Substance: MICAFUNGIN
     Indication: Acute sinusitis
     Dosage: UNK
     Route: 065
  8. MICAFUNGIN [Suspect]
     Active Substance: MICAFUNGIN
     Indication: Fusarium infection

REACTIONS (2)
  - Drug ineffective for unapproved indication [Unknown]
  - Off label use [Unknown]
